FAERS Safety Report 14078039 (Version 2)
Quarter: 2017Q4

REPORT INFORMATION
  Report Type: Report from Study
  Country: US (occurrence: US)
  Receive Date: 20171012
  Receipt Date: 20171027
  Transmission Date: 20180321
  Serious: No
  Sender: FDA-Public Use
  Company Number: US-ROCHE-2005737

PATIENT
  Sex: Female

DRUGS (2)
  1. OCREVUS [Suspect]
     Active Substance: OCRELIZUMAB
     Indication: MULTIPLE SCLEROSIS
     Dosage: ONGOING UNKNOWN?DAY 01 AND DAY 15
     Route: 042
     Dates: start: 20170928
  2. OCREVUS [Suspect]
     Active Substance: OCRELIZUMAB
     Dosage: ONGOING UNKNOWN?DAY 01 AND DAY 15
     Route: 042

REACTIONS (3)
  - Fatigue [Not Recovered/Not Resolved]
  - Gastroenteritis viral [Unknown]
  - Contusion [Not Recovered/Not Resolved]
